FAERS Safety Report 7551669-4 (Version None)
Quarter: 2011Q2

REPORT INFORMATION
  Report Type: 
  Country: None (occurrence: None)
  Receive Date: 20110609
  Receipt Date: 20110524
  Transmission Date: 20111010
  Serious: Yes (Hospitalization)
  Sender: FDA-Public Use
  Company Number: 2011MA006380

PATIENT
  Age: 72 Year
  Sex: Male

DRUGS (3)
  1. DEXAMETHASONE [Concomitant]
  2. PACLITAXEL [Suspect]
     Indication: LUNG NEOPLASM MALIGNANT
     Dosage: 175 MG/M2; INJ
  3. CARBOPLATIN [Concomitant]

REACTIONS (7)
  - HAEMOGLOBIN DECREASED [None]
  - ERYTHEMA MULTIFORME [None]
  - RESPIRATORY DISORDER [None]
  - RENAL CANCER [None]
  - BLOOD PRESSURE DECREASED [None]
  - HEART RATE INCREASED [None]
  - EOSINOPHIL PERCENTAGE DECREASED [None]
